FAERS Safety Report 4956943-3 (Version None)
Quarter: 2006Q1

REPORT INFORMATION
  Report Type: 
  Country: None (occurrence: None)
  Receive Date: 20060127
  Receipt Date: 20050513
  Transmission Date: 20060701
  Serious: Yes (Hospitalization, Other)
  Sender: FDA-Public Use
  Company Number: 05-05-0829

PATIENT
  Age: 22 Year
  Sex: Male
  Weight: 86.637 kg

DRUGS (3)
  1. CLOZAPINE [Suspect]
     Indication: SCHIZOPHRENIA
     Dosage: 400 MG, QD, ORAL
     Route: 048
     Dates: start: 20050104
  2. HYDROCHLOROTHIAZIDE [Concomitant]
  3. PANTOPRAZOLE [Concomitant]

REACTIONS (1)
  - DYSPHAGIA [None]
